FAERS Safety Report 18195269 (Version 2)
Quarter: 2020Q3

REPORT INFORMATION
  Report Type: Spontaneous
  Country: GB (occurrence: GB)
  Receive Date: 20200825
  Receipt Date: 20200915
  Transmission Date: 20201103
  Serious: Yes (Death, Other)
  Sender: FDA-Public Use
  Company Number: GB-MYLANLABS-2020M1072743

PATIENT
  Age: 57 Year
  Sex: Male
  Weight: 55.4 kg

DRUGS (33)
  1. METHADONE [Suspect]
     Active Substance: METHADONE HYDROCHLORIDE
     Indication: PRODUCT USED FOR UNKNOWN INDICATION
     Dosage: 20 MILLIGRAM, QD
     Route: 048
  2. DESCOVY [Concomitant]
     Active Substance: EMTRICITABINE\TENOFOVIR ALAFENAMIDE FUMARATE
     Dosage: 200 MILLIGRAM, QD
  3. CLOPIDOGREL [Concomitant]
     Active Substance: CLOPIDOGREL BISULFATE
     Indication: CORONARY ARTERY DISEASE
     Dosage: UNK
  4. CO?AMOXICLAV                       /00756801/ [Concomitant]
     Active Substance: AMOXICILLIN\CLAVULANIC ACID
     Dosage: 3 DOSAGE FORM, QD,500MG/125MG
     Dates: start: 20190424
  5. ACICLOVIR [Concomitant]
     Active Substance: ACYCLOVIR
     Dosage: 4000 MILLIGRAM, QD
     Dates: start: 20200216
  6. DIAZEPAM. [Concomitant]
     Active Substance: DIAZEPAM
     Indication: ANXIETY
     Dosage: UNK
  7. DIAZEPAM. [Concomitant]
     Active Substance: DIAZEPAM
     Dosage: 10 MILLIGRAM, QD NIGHT
  8. DESCOVY [Concomitant]
     Active Substance: EMTRICITABINE\TENOFOVIR ALAFENAMIDE FUMARATE
     Dosage: UNK
  9. RITONAVIR. [Suspect]
     Active Substance: RITONAVIR
     Indication: HIV INFECTION
     Dosage: 100 MILLIGRAM, QD
     Route: 048
     Dates: start: 20180904
  10. CLOPIDOGREL [Concomitant]
     Active Substance: CLOPIDOGREL BISULFATE
     Dosage: 75 MILLIGRAM, QD LIFELONG
  11. ACETYLSALICYLIC ACID [Concomitant]
     Active Substance: ASPIRIN
     Indication: CORONARY ARTERY DISEASE
     Dosage: 75 MILLIGRAM, QD
  12. CLARITHROMYCIN. [Suspect]
     Active Substance: CLARITHROMYCIN
     Indication: CELLULITIS
     Dosage: 1000 MILLIGRAM, QD
     Route: 048
     Dates: start: 20200226
  13. CLENIL MODULITE [Concomitant]
     Active Substance: BECLOMETHASONE DIPROPIONATE
     Indication: CHRONIC OBSTRUCTIVE PULMONARY DISEASE
     Dosage: UNK
  14. FLUCLOXACILLIN [Concomitant]
     Active Substance: FLUCLOXACILLIN
     Dosage: UNK
  15. ZOPICLONE [Concomitant]
     Active Substance: ZOPICLONE
     Dosage: 7.5 MILLIGRAM, QD,NIGHT
  16. LIDOCAINE. [Concomitant]
     Active Substance: LIDOCAINE
     Dosage: 1 DOSAGE FORM, QD,UP TO 12 HOURS FOLLOWED BY A 12 HOUR PLASTER?FREE PERIOD AS DIRECTED.
     Dates: start: 20190916
  17. CLENIL MODULITE [Concomitant]
     Active Substance: BECLOMETHASONE DIPROPIONATE
     Dosage: 200 MICROGRAM, QD,PUFFS VIA SPACER
  18. MONOMIL XL [Concomitant]
     Active Substance: ISOSORBIDE MONONITRATE
     Indication: ANGINA PECTORIS
     Dosage: UNK
  19. AMLODIPINE [Concomitant]
     Active Substance: AMLODIPINE BESYLATE
     Dosage: 5 MILLIGRAM, QD
  20. ZOPICLONE [Concomitant]
     Active Substance: ZOPICLONE
     Indication: INSOMNIA
     Dosage: UNK
  21. NITROMIN                           /00003201/ [Concomitant]
     Dosage: 400 MICROGRAM,SPRAY ONE OR TWO DOSES UNDER TONGUE AND THEN CLOSE MOUTH AS DIRECTED
  22. XYLOCAINE WITH ADRENALINE          /00056401/ [Concomitant]
     Dosage: 0.13 DOSAGE FORM,100MICROGRAMS/20ML (1 IN 200,00) TO BE ADMINISTERED BY A DOCTOR
     Dates: start: 20190828
  23. TINZAPARIN [Concomitant]
     Active Substance: TINZAPARIN
     Indication: ANTICOAGULANT THERAPY
     Dosage: UNK
  24. ACICLOVIR [Concomitant]
     Active Substance: ACYCLOVIR
     Dosage: UNK
  25. FLUCLOXACILLIN [Concomitant]
     Active Substance: FLUCLOXACILLIN
     Dosage: 4000 MILLIGRAM, QD
     Dates: start: 20200219
  26. TIOTROPIUM BROMIDE [Concomitant]
     Active Substance: TIOTROPIUM BROMIDE
     Dosage: 5 MICROGRAM, QD PUFFS
  27. AMLODIPINE [Concomitant]
     Active Substance: AMLODIPINE BESYLATE
     Indication: HYPOTENSION
     Dosage: UNK
  28. ATAZANAVIR SULFATE. [Suspect]
     Active Substance: ATAZANAVIR SULFATE
     Indication: HIV INFECTION
     Dosage: 300 MILLIGRAM, QD
     Route: 048
     Dates: start: 20180924
  29. PREGABALIN. [Concomitant]
     Active Substance: PREGABALIN
     Indication: NEUROPATHY PERIPHERAL
     Dosage: UNK
  30. MONOMIL XL [Concomitant]
     Active Substance: ISOSORBIDE MONONITRATE
     Dosage: 60 MILLIGRAM, QD, MORNING
  31. VOLTAROL                           /00372303/ [Concomitant]
     Active Substance: DICLOFENAC DIETHYLAMINE
     Dosage: 2 MILLILITER, QD
  32. PREGABALIN. [Concomitant]
     Active Substance: PREGABALIN
     Dosage: 600 MILLIGRAM, QD
  33. TIOTROPIUM BROMIDE [Concomitant]
     Active Substance: TIOTROPIUM BROMIDE
     Indication: CHRONIC OBSTRUCTIVE PULMONARY DISEASE
     Dosage: UNK

REACTIONS (2)
  - Arrhythmia [Fatal]
  - Drug dependence [Unknown]

NARRATIVE: CASE EVENT DATE: 20200226
